FAERS Safety Report 14097378 (Version 2)
Quarter: 2020Q1

REPORT INFORMATION
  Report Type: Spontaneous
  Country: US (occurrence: US)
  Receive Date: 20171016
  Receipt Date: 20200203
  Transmission Date: 20200409
  Serious: Yes (Other)
  Sender: FDA-Public Use
  Company Number: US-AMGEN-USASP2016175020

PATIENT
  Age: 54 Year
  Sex: Female

DRUGS (3)
  1. PROLIA [Suspect]
     Active Substance: DENOSUMAB
     Indication: OSTEOPOROSIS POSTMENOPAUSAL
     Dosage: 60 MILLIGRAM, Q6MO
     Route: 065
     Dates: start: 20120424
  2. VALIUM [Concomitant]
     Active Substance: DIAZEPAM
  3. PROLIA [Suspect]
     Active Substance: DENOSUMAB
     Indication: OSTEOPENIA

REACTIONS (13)
  - Myalgia [Unknown]
  - Loss of consciousness [Unknown]
  - Heart rate increased [Not Recovered/Not Resolved]
  - Blood pressure decreased [Unknown]
  - Bone pain [Unknown]
  - Throat tightness [Not Recovered/Not Resolved]
  - Eczema [Unknown]
  - Muscle spasms [Not Recovered/Not Resolved]
  - Concussion [Unknown]
  - Muscular weakness [Unknown]
  - Arthralgia [Unknown]
  - Dystonia [Not Recovered/Not Resolved]
  - Back pain [Unknown]

NARRATIVE: CASE EVENT DATE: 2012
